FAERS Safety Report 15786454 (Version 1)
Quarter: 2018Q4

REPORT INFORMATION
  Report Type: Spontaneous
  Country: US (occurrence: US)
  Receive Date: 20181212
  Receipt Date: 20181212
  Transmission Date: 20190205
  Serious: No
  Sender: FDA-Public Use
  Company Number: None

PATIENT
  Sex: Male

DRUGS (2)
  1. LEVAQUIN [Suspect]
     Active Substance: LEVOFLOXACIN
  2. CIPRO [Suspect]
     Active Substance: CIPROFLOXACIN HYDROCHLORIDE

REACTIONS (13)
  - Neuropathy peripheral [None]
  - Bladder cancer [None]
  - Liver disorder [None]
  - Product complaint [None]
  - Nerve injury [None]
  - Tendon disorder [None]
  - Multi-organ disorder [None]
  - Product use complaint [None]
  - Muscle injury [None]
  - Ligament disorder [None]
  - Bladder disorder [None]
  - Bladder irritation [None]
  - Renal disorder [None]
